FAERS Safety Report 14111532 (Version 1)
Quarter: 2017Q4

REPORT INFORMATION
  Report Type: Spontaneous
  Country: MX (occurrence: MX)
  Receive Date: 20171020
  Receipt Date: 20171020
  Transmission Date: 20180321
  Serious: Yes (Other)
  Sender: FDA-Public Use
  Company Number: MX-GLAXOSMITHKLINE-MX2017GSK161503

PATIENT
  Age: 11 Year
  Sex: Female

DRUGS (1)
  1. SALBUTAMOL [Suspect]
     Active Substance: ALBUTEROL
     Indication: ASTHMA

REACTIONS (5)
  - Dental caries [Unknown]
  - Periodontitis [Unknown]
  - Adenoidal hypertrophy [Unknown]
  - Gingival oedema [Unknown]
  - Gingival bleeding [Unknown]
